FAERS Safety Report 5436289-X (Version None)
Quarter: 2007Q3

REPORT INFORMATION
  Report Type: 
  Country: None (occurrence: None)
  Receive Date: 20070831
  Receipt Date: 20070821
  Transmission Date: 20080115
  Serious: Yes (Hospitalization)
  Sender: FDA-Public Use
  Company Number: US-AMGEN-STX239788

PATIENT
  Sex: Female

DRUGS (2)
  1. ENBREL [Suspect]
     Indication: PSORIATIC ARTHROPATHY
     Route: 058
     Dates: start: 20051001
  2. ENBREL [Suspect]
     Indication: PSORIASIS

REACTIONS (8)
  - ATRIAL FLUTTER [None]
  - CONDITION AGGRAVATED [None]
  - DIARRHOEA [None]
  - FATIGUE [None]
  - HEADACHE [None]
  - NAUSEA [None]
  - PSORIASIS [None]
  - PSORIATIC ARTHROPATHY [None]
